FAERS Safety Report 6765741-X (Version None)
Quarter: 2010Q2

REPORT INFORMATION
  Report Type: 
  Country: None (occurrence: None)
  Receive Date: 20100611
  Receipt Date: 20100531
  Transmission Date: 20101027
  Serious: Yes (Hospitalization)
  Sender: FDA-Public Use
  Company Number: FR-TEVA-236394ISR

PATIENT
  Sex: Male

DRUGS (11)
  1. AZILECT [Interacting]
     Indication: PARKINSON'S DISEASE
     Route: 048
     Dates: start: 20100114, end: 20100119
  2. HYOSCINE HBR HYT [Suspect]
     Indication: PARKINSON'S DISEASE
     Route: 062
     Dates: start: 20100114, end: 20100119
  3. ENTACAPONE [Interacting]
     Indication: PARKINSON'S DISEASE
     Route: 048
  4. SINEMET [Concomitant]
     Indication: PARKINSON'S DISEASE
     Dosage: 1000MG/250MG
     Route: 048
  5. MADOPAR [Concomitant]
     Indication: PARKINSON'S DISEASE
     Route: 048
  6. AMANTADINE HYDROCHLORIDE [Concomitant]
     Indication: PARKINSON'S DISEASE
     Route: 048
  7. MIDODRINE HYDROCHLORIDE [Concomitant]
     Route: 048
  8. ESOMEPRAZOLE MAGNESIUM [Concomitant]
     Route: 048
  9. CLONAZEPAM [Concomitant]
     Route: 048
  10. ALLOPURINOL [Concomitant]
     Route: 048
  11. MACROGOL [Concomitant]
     Route: 048

REACTIONS (4)
  - CONFUSIONAL STATE [None]
  - DRUG INTERACTION [None]
  - FALL [None]
  - OVERDOSE [None]
